FAERS Safety Report 20012128 (Version 1)
Quarter: 2021Q4

REPORT INFORMATION
  Report Type: Spontaneous
  Country: CN (occurrence: CN)
  Receive Date: 20211028
  Receipt Date: 20211028
  Transmission Date: 20220303
  Serious: Yes (Life-Threatening, Other)
  Sender: FDA-Public Use
  Company Number: CN-JIANGSU HENGRUI MEDICINE CO., LTD.-2121135

PATIENT
  Age: 75 Year
  Sex: Male
  Weight: 42 kg

DRUGS (3)
  1. OXALIPLATIN [Suspect]
     Active Substance: OXALIPLATIN
     Indication: Oesophageal carcinoma
     Route: 041
     Dates: start: 20211010, end: 20211010
  2. LEUCOVORIN CALCIUM [Suspect]
     Active Substance: LEUCOVORIN CALCIUM
     Route: 041
     Dates: start: 20211010, end: 20211010
  3. FLUOROURACIL [Suspect]
     Active Substance: FLUOROURACIL
     Dates: start: 20211010, end: 20211012

REACTIONS (5)
  - Gastrointestinal disorder [Unknown]
  - Mental disorder [Unknown]
  - Renal injury [Unknown]
  - Liver injury [Unknown]
  - Myocardial injury [Unknown]

NARRATIVE: CASE EVENT DATE: 20211011
